FAERS Safety Report 19139166 (Version 1)
Quarter: 2021Q2

REPORT INFORMATION
  Report Type: Spontaneous
  Country: US (occurrence: US)
  Receive Date: 20210414
  Receipt Date: 20210414
  Transmission Date: 20210717
  Serious: Yes (Other)
  Sender: FDA-Public Use
  Company Number: None

PATIENT
  Age: 55 Year
  Sex: Female
  Weight: 58.5 kg

DRUGS (5)
  1. SODIUM FLUORIDE 5000 PPM FRUIT [Suspect]
     Active Substance: SODIUM FLUORIDE
     Dosage: ?          QUANTITY:1 PEA SIZE;OTHER ROUTE:BRUSHED IN MOUTH, THEN SPIT OUT?
     Dates: start: 20210410, end: 20210410
  2. CEQUA [Concomitant]
     Active Substance: CYCLOSPORINE
  3. SYNTHROID [Concomitant]
     Active Substance: LEVOTHYROXINE SODIUM
  4. ESTRADIOL. [Concomitant]
     Active Substance: ESTRADIOL
  5. MEGAFOOD MULTI FOR WOMEN 55+ [Concomitant]

REACTIONS (5)
  - Swelling of eyelid [None]
  - Dizziness [None]
  - Dyspnoea [None]
  - Oral discomfort [None]
  - Manufacturing materials issue [None]

NARRATIVE: CASE EVENT DATE: 20210410
